FAERS Safety Report 7123743-8 (Version None)
Quarter: 2010Q4

REPORT INFORMATION
  Report Type: 
  Country: None (occurrence: None)
  Receive Date: 20101125
  Receipt Date: 20101116
  Transmission Date: 20110411
  Serious: Yes (Hospitalization)
  Sender: FDA-Public Use
  Company Number: JP-ELI_LILLY_AND_COMPANY-JP201011000909

PATIENT
  Age: 70 Year
  Sex: Male
  Weight: 43 kg

DRUGS (8)
  1. GEMZAR [Suspect]
     Indication: PANCREATIC CARCINOMA STAGE IV
     Dosage: 1370 MG, OTHER
     Route: 042
     Dates: start: 20101022, end: 20101029
  2. LOXONIN [Concomitant]
     Dosage: 60 MG, 3/D
     Route: 048
  3. GASTER D [Concomitant]
     Dosage: 20 MG, 2/D
     Route: 048
  4. ADJUST-A [Concomitant]
     Dosage: 80 MG, DAILY (1/D)
     Route: 048
  5. HEPAFLUSH [Concomitant]
     Route: 042
  6. GRANISETRON HCL [Concomitant]
     Dosage: 3 MG, OTHER
     Route: 042
     Dates: start: 20101022, end: 20101029
  7. SOLITA-T1 [Concomitant]
     Dosage: UNK, UNK
     Route: 042
     Dates: start: 20101022
  8. DEXART [Concomitant]
     Dosage: 6.6 MG, DAILY (1/D)
     Route: 042
     Dates: start: 20101029, end: 20101029

REACTIONS (3)
  - ERYTHEMA [None]
  - PRURITUS [None]
  - URTICARIA [None]
